FAERS Safety Report 23439256 (Version 1)
Quarter: 2024Q1

REPORT INFORMATION
  Report Type: Spontaneous
  Country: US (occurrence: US)
  Receive Date: 20240124
  Receipt Date: 20240124
  Transmission Date: 20240409
  Serious: No
  Sender: FDA-Public Use
  Company Number: US-BAYER-2024A012140

PATIENT
  Age: 20 Year
  Sex: Female

DRUGS (1)
  1. JIVI [Suspect]
     Active Substance: DAMOCTOCOG ALFA PEGOL
     Dosage: INFUSE 2740 UNITS (+/-10%) DAILY AS NEEDED,FOR BLEEDING

REACTIONS (2)
  - Influenza [None]
  - Joint injury [None]

NARRATIVE: CASE EVENT DATE: 20240113
